FAERS Safety Report 20184234 (Version 1)
Quarter: 2021Q4

REPORT INFORMATION
  Report Type: Spontaneous
  Country: CA (occurrence: CA)
  Receive Date: 20211214
  Receipt Date: 20211214
  Transmission Date: 20220303
  Serious: Yes (Other)
  Sender: FDA-Public Use
  Company Number: CA-ALXN-A202113497

PATIENT
  Age: 14 Year
  Sex: Male

DRUGS (5)
  1. SOLIRIS [Suspect]
     Active Substance: ECULIZUMAB
     Indication: Thrombotic microangiopathy
     Dosage: 900 MG, QW(WEEKLY)
     Route: 065
  2. SOLIRIS [Suspect]
     Active Substance: ECULIZUMAB
     Indication: Off label use
     Dosage: 1200 MG, Q2W (BI-WEEKLY, FOR A PLANNED 3-6-MONTHS COURSE)
     Route: 065
  3. SIROLIMUS [Concomitant]
     Active Substance: SIROLIMUS
     Indication: Product used for unknown indication
     Route: 065
  4. MYCOPHENOLATE MOFETIL [Concomitant]
     Active Substance: MYCOPHENOLATE MOFETIL
     Indication: Product used for unknown indication
     Route: 065
  5. PENICILLIN V                       /00001801/ [Concomitant]
     Indication: Prophylaxis
     Route: 065

REACTIONS (6)
  - Staphylococcal mediastinitis [Unknown]
  - Osteomyelitis bacterial [Unknown]
  - Pericarditis constrictive [Unknown]
  - Cytomegalovirus oesophagitis [Unknown]
  - Disseminated varicella zoster virus infection [Unknown]
  - Off label use [Unknown]
